FAERS Safety Report 7792906-0 (Version None)
Quarter: 2011Q4

REPORT INFORMATION
  Report Type: 
  Country: None (occurrence: None)
  Receive Date: 20111003
  Receipt Date: 20110921
  Transmission Date: 20120403
  Serious: Yes (Other)
  Sender: FDA-Public Use
  Company Number: PHHY2011BR86003

PATIENT
  Sex: Female

DRUGS (1)
  1. FORMOTEROL FUMARATE [Suspect]
     Indication: EMPHYSEMA
     Dosage: 2 CAPSULES IN MORNING AND 2 CAPSULES AT NIGHT

REACTIONS (4)
  - HYPERSENSITIVITY [None]
  - COUGH [None]
  - APHTHOUS STOMATITIS [None]
  - DYSPNOEA [None]
